FAERS Safety Report 4583746-4 (Version None)
Quarter: 2005Q1

REPORT INFORMATION
  Report Type: 
  Country: None (occurrence: None)
  Receive Date: 20050211
  Receipt Date: 20050202
  Transmission Date: 20050727
  Serious: Yes (Other)
  Sender: FDA-Public Use
  Company Number: 200510502BCC

PATIENT
  Age: 19 Year
  Sex: Female
  Weight: 61.2356 kg

DRUGS (1)
  1. MIDOL [Suspect]
     Indication: MENSTRUAL DISCOMFORT
     Dosage: 1000/120/30 MG, ONCE, ORAL
     Route: 048
     Dates: start: 20050202

REACTIONS (2)
  - ANAL DISCOMFORT [None]
  - RECTAL HAEMORRHAGE [None]
